FAERS Safety Report 10087703 (Version 1)
Quarter: 2014Q2

REPORT INFORMATION
  Report Type: Spontaneous
  Country: US (occurrence: US)
  Receive Date: 20140418
  Receipt Date: 20140418
  Transmission Date: 20141212
  Serious: No
  Sender: FDA-Public Use
  Company Number: US-PURDUE-USA-2014-0110121

PATIENT
  Age: 77 Year
  Sex: Female

DRUGS (2)
  1. OXYCODONE HYDROCHLORIDE (SIMILAR TO NDA 22-272) [Suspect]
     Indication: BACK PAIN
     Route: 048
  2. OXYCODONE HYDROCHLORIDE (SIMILAR TO NDA 22-272) [Suspect]
     Dosage: 40 MG, DAILY
     Route: 048

REACTIONS (3)
  - Osteoarthritis [Unknown]
  - Drug effect decreased [Unknown]
  - Disturbance in attention [Unknown]
